FAERS Safety Report 7176977-0 (Version None)
Quarter: 2010Q4

REPORT INFORMATION
  Report Type: 
  Country: None (occurrence: None)
  Receive Date: 20101220
  Receipt Date: 20101215
  Transmission Date: 20110411
  Serious: Yes (Hospitalization)
  Sender: FDA-Public Use
  Company Number: JP-ABBOTT-10P-087-0682123-00

PATIENT
  Sex: Female
  Weight: 41 kg

DRUGS (16)
  1. HUMIRA [Suspect]
     Indication: RHEUMATOID ARTHRITIS
     Route: 058
     Dates: start: 20101025, end: 20101025
  2. PREDNISOLONE [Concomitant]
     Indication: PRODUCT USED FOR UNKNOWN INDICATION
     Dosage: 0.5 TAB 1/DAY AT BREAKFAST
     Dates: start: 20100401
  3. CELECOXIB [Concomitant]
     Indication: PRODUCT USED FOR UNKNOWN INDICATION
     Dosage: MA, AFTER MEALS
     Dates: start: 20100401
  4. ALFACALCIDOL [Concomitant]
     Indication: PRODUCT USED FOR UNKNOWN INDICATION
     Dosage: AFTER BREAKFAST
     Dates: start: 20100401
  5. TOCOPHERYL NICOTINATE [Concomitant]
     Indication: PRODUCT USED FOR UNKNOWN INDICATION
     Dosage: AFTER EACH MEAL
     Dates: start: 20100401
  6. BROTIZOLAM [Concomitant]
     Indication: PRODUCT USED FOR UNKNOWN INDICATION
     Dosage: BEFORE SLEEP
     Dates: start: 20100401
  7. REBAMIPIDE [Concomitant]
     Dosage: AFTER EACH MEAL
     Dates: start: 20100401
  8. LACTOMIN [Concomitant]
     Indication: PRODUCT USED FOR UNKNOWN INDICATION
     Dosage: AFTER EACH MEAL
     Dates: start: 20100401
  9. CHINESE HERBAL MEDICINE [Concomitant]
     Indication: PRODUCT USED FOR UNKNOWN INDICATION
     Dosage: BEFORE EACH MEAL
     Dates: start: 20100401
  10. MAGNESIUM OXIDE [Concomitant]
     Indication: PRODUCT USED FOR UNKNOWN INDICATION
     Dosage: AFTER EACH MEAL
     Dates: start: 20100401
  11. DICLOFENAC SODIUM [Concomitant]
     Indication: PAIN
     Route: 061
     Dates: start: 20100401
  12. MESALAZINE [Concomitant]
     Indication: PRODUCT USED FOR UNKNOWN INDICATION
     Dosage: MA, AFTER MEALS
     Dates: start: 20100401
  13. SALAZOSULFAPYRIDINE [Concomitant]
     Indication: PRODUCT USED FOR UNKNOWN INDICATION
     Dosage: 1 SUPPOSITORY DURING THE DAY
     Dates: start: 20100401
  14. CLOBETASOL PROPIONATE [Concomitant]
     Indication: PRODUCT USED FOR UNKNOWN INDICATION
     Dosage: APPLIED TWICE A DAY ON THE SCALP
     Route: 061
     Dates: start: 20100401
  15. MAXACALCITOL [Concomitant]
     Indication: PRODUCT USED FOR UNKNOWN INDICATION
     Dosage: MIXED USING A 50G CUP AND APPLIED
     Route: 061
     Dates: start: 20100401
  16. CLOBETASOL PROPIONATE [Concomitant]
     Dosage: MIXED USING A 50G CUP AND APPLIED
     Route: 061
     Dates: start: 20100401

REACTIONS (2)
  - CONVULSION [None]
  - LOSS OF CONSCIOUSNESS [None]
